FAERS Safety Report 9478141 (Version 1)
Quarter: 2013Q3

REPORT INFORMATION
  Report Type: Spontaneous
  Country: US (occurrence: US)
  Receive Date: 20130827
  Receipt Date: 20130827
  Transmission Date: 20140515
  Serious: Yes (Other)
  Sender: FDA-Public Use
  Company Number: US-GENZYME-CERZ-1003144

PATIENT
  Age: 59 Year
  Sex: Female

DRUGS (1)
  1. CEREZYME [Suspect]
     Indication: GAUCHER^S DISEASE
     Dosage: 5600 U, Q2W
     Route: 042
     Dates: start: 19940315

REACTIONS (2)
  - Fall [Unknown]
  - Upper limb fracture [Unknown]
